FAERS Safety Report 15210071 (Version 2)
Quarter: 2018Q3

REPORT INFORMATION
  Report Type: Spontaneous
  Country: DE (occurrence: DE)
  Receive Date: 20180727
  Receipt Date: 20180828
  Transmission Date: 20181010
  Serious: Yes (Hospitalization)
  Sender: FDA-Public Use
  Company Number: DE-PFIZER INC-2018296777

PATIENT
  Age: 55 Year
  Sex: Male

DRUGS (6)
  1. VENLAFAXINE HCL [Suspect]
     Active Substance: VENLAFAXINE HYDROCHLORIDE
     Dosage: 75 MG, 1X/DAY DOSAGE FORM: UNSPECIFIED
     Route: 048
     Dates: start: 20171109, end: 20171211
  2. NALTREXON [Interacting]
     Active Substance: NALTREXONE
     Dosage: 100 MG, 1X/DAY DOSAGE FORM: UNSPECIFIED
     Route: 048
     Dates: start: 20170101
  3. VENLAFAXINE HCL [Interacting]
     Active Substance: VENLAFAXINE HYDROCHLORIDE
     Dosage: 150 MG, 1X/DAY DOSAGE FORM: UNSPECIFIED
     Route: 048
     Dates: start: 20171202
  4. RISPERDAL [Interacting]
     Active Substance: RISPERIDONE
     Indication: BORDERLINE PERSONALITY DISORDER
     Dosage: 2 MG, 1X/DAY DOSAGE FORM: UNSPECIFIED
     Route: 048
     Dates: start: 20170101
  5. VENLAFAXINE HCL [Interacting]
     Active Substance: VENLAFAXINE HYDROCHLORIDE
     Dosage: 225 MG, 1X/DAY DOSAGE FORM: UNSPECIFIED
     Route: 048
     Dates: start: 20171114, end: 20171201
  6. VENLAFAXINE HCL [Interacting]
     Active Substance: VENLAFAXINE HYDROCHLORIDE
     Dosage: 150 MG, 1X/DAY DOSAGE FORM: UNSPECIFIED
     Route: 048
     Dates: start: 20171212, end: 20171213

REACTIONS (3)
  - Constipation [Recovering/Resolving]
  - Abdominal pain [Recovering/Resolving]
  - Drug interaction [Unknown]

NARRATIVE: CASE EVENT DATE: 201711
